FAERS Safety Report 13352133 (Version 1)
Quarter: 2017Q1

REPORT INFORMATION
  Report Type: Spontaneous
  Country: US (occurrence: US)
  Receive Date: 20170320
  Receipt Date: 20170320
  Transmission Date: 20170429
  Serious: No
  Sender: FDA-Public Use
  Company Number: US-SA-2016SA136984

PATIENT
  Age: 56 Year
  Sex: Female

DRUGS (1)
  1. NASACORT ALLERGY 24HR [Suspect]
     Active Substance: TRIAMCINOLONE ACETONIDE
     Indication: EAR INFECTION
     Route: 065

REACTIONS (11)
  - Eyelid disorder [Unknown]
  - Eye swelling [Unknown]
  - Nasal congestion [Unknown]
  - Pollakiuria [Unknown]
  - Cough [Unknown]
  - Dry throat [Unknown]
  - Drug ineffective for unapproved indication [Unknown]
  - Thirst [Unknown]
  - Product use issue [Unknown]
  - Choking sensation [Unknown]
  - Headache [Unknown]
